FAERS Safety Report 13625784 (Version 3)
Quarter: 2017Q4

REPORT INFORMATION
  Report Type: Spontaneous
  Country: US (occurrence: US)
  Receive Date: 20170607
  Receipt Date: 20171002
  Transmission Date: 20180320
  Serious: Yes (Hospitalization, Other)
  Sender: FDA-Public Use
  Company Number: US-PFIZER INC-2017245264

PATIENT
  Age: 67 Year
  Sex: Female
  Weight: 44 kg

DRUGS (17)
  1. IBRANCE [Suspect]
     Active Substance: PALBOCICLIB
     Dosage: 125 MG, CYCLIC (3 WEEKS ON/1 WEEK OFF)
     Dates: start: 20161222, end: 20170111
  2. XELODA [Suspect]
     Active Substance: CAPECITABINE
     Indication: BREAST CANCER METASTATIC
     Dosage: UNK, WEEKLY
     Route: 048
     Dates: start: 20170208, end: 20170214
  3. FASLODEX [Concomitant]
     Active Substance: FULVESTRANT
     Indication: BREAST CANCER METASTATIC
     Dosage: UNK, MONTHLY
     Dates: start: 20161024, end: 20161024
  4. FASLODEX [Concomitant]
     Active Substance: FULVESTRANT
     Dosage: UNK, MONTHLY
     Dates: start: 20161201, end: 20161201
  5. FASLODEX [Concomitant]
     Active Substance: FULVESTRANT
     Dosage: UNK, MONTHLY
     Dates: start: 20170405, end: 20170405
  6. IBRANCE [Suspect]
     Active Substance: PALBOCICLIB
     Indication: BREAST CANCER METASTATIC
     Dosage: 125 MG, CYCLIC (3 WEEKS ON/1 WEEK OFF)
     Dates: start: 20161124, end: 20161214
  7. IBRANCE [Suspect]
     Active Substance: PALBOCICLIB
     Dosage: 100 MG, CYCLIC (3 WEEKS ON/1 WEEK OFF)
     Dates: start: 20170801, end: 20170821
  8. FASLODEX [Concomitant]
     Active Substance: FULVESTRANT
     Dosage: UNK, MONTHLY
     Dates: start: 20161229, end: 20161229
  9. ZOMETA [Concomitant]
     Active Substance: ZOLEDRONIC ACID
     Indication: BONE DISORDER
     Dosage: UNK, MONTHLY
     Route: 042
  10. SYNTHROID [Concomitant]
     Active Substance: LEVOTHYROXINE SODIUM
     Indication: THYROIDECTOMY
     Dosage: 125 MG, 1X/DAY
     Dates: start: 2004
  11. IBRANCE [Suspect]
     Active Substance: PALBOCICLIB
     Dosage: 125 MG, CYCLIC (3 WEEKS ON/1 WEEK OFF)
     Dates: start: 20170601, end: 20170621
  12. IBRANCE [Suspect]
     Active Substance: PALBOCICLIB
     Dosage: 100 MG, CYCLIC (3 WEEKS ON/1 WEEK OFF)
     Dates: start: 20170830
  13. FASLODEX [Concomitant]
     Active Substance: FULVESTRANT
     Dosage: UNK, MONTHLY
     Dates: start: 20170503
  14. XELODA [Suspect]
     Active Substance: CAPECITABINE
     Dosage: UNK, WEEKLY
     Dates: start: 20170222, end: 20170228
  15. FASLODEX [Concomitant]
     Active Substance: FULVESTRANT
     Dosage: UNK, MONTHLY
     Dates: start: 20161123, end: 20161123
  16. IBRANCE [Suspect]
     Active Substance: PALBOCICLIB
     Dosage: 125 MG, CYCLIC (3 WEEKS ON/1 WEEK OFF)
     Dates: start: 20170121, end: 20170126
  17. XELODA [Suspect]
     Active Substance: CAPECITABINE
     Dosage: UNK, WEEKLY
     Dates: start: 20170308, end: 20170314

REACTIONS (8)
  - Pleural effusion [Recovered/Resolved]
  - Rib fracture [Recovered/Resolved]
  - Dehydration [Unknown]
  - Dyspnoea [Unknown]
  - Fall [Unknown]
  - Electrolyte imbalance [Unknown]
  - Neoplasm progression [Unknown]
  - Malnutrition [Unknown]

NARRATIVE: CASE EVENT DATE: 201611
